FAERS Safety Report 8985058 (Version 1)
Quarter: 2012Q4

REPORT INFORMATION
  Report Type: 
  Country: US (occurrence: US)
  Receive Date: 20121226
  Receipt Date: 20121226
  Transmission Date: 20130627
  Serious: No
  Sender: FDA-Public Use
  Company Number: US-PFIZER INC-2012326004

PATIENT
  Age: 50 Year
  Sex: Male
  Weight: 102 kg

DRUGS (5)
  1. LYRICA [Suspect]
     Indication: DIABETIC NEUROPATHY
     Dosage: 150 mg, single
     Dates: start: 20121219, end: 20121219
  2. LYRICA [Suspect]
     Indication: NERVOUS SYSTEM DISORDER
  3. NEXIUM [Concomitant]
     Indication: ACID REFLUX (OESOPHAGEAL)
     Dosage: 40 mg, daily
  4. XANAX [Concomitant]
     Indication: DEPRESSION
     Dosage: 1 mg, 2x/day
  5. NEURONTIN [Concomitant]
     Dosage: 600 mg, 3x/day
     Dates: end: 20121219

REACTIONS (1)
  - Drug ineffective [Unknown]
